FAERS Safety Report 25679181 (Version 2)
Quarter: 2025Q4

REPORT INFORMATION
  Report Type: Spontaneous
  Country: EU (occurrence: EU)
  Receive Date: 20250814
  Receipt Date: 20251030
  Transmission Date: 20260117
  Serious: Yes (Death, Hospitalization, Other)
  Sender: SANDOZ
  Company Number: EU-ORESUND-25OPAJY0774P

PATIENT
  Age: 75 Year
  Sex: Female

DRUGS (8)
  1. COVID-19 VACCINE NOS [Suspect]
     Active Substance: COVID-19 VACCINE
     Indication: Product used for unknown indication
     Dosage: FIRST DOSE
     Route: 030
     Dates: start: 20210602
  2. COVID-19 VACCINE NOS [Suspect]
     Active Substance: COVID-19 VACCINE
     Dosage: SECOND DOSE
     Route: 030
     Dates: start: 20210708
  3. METHOTREXATE [Suspect]
     Active Substance: METHOTREXATE
     Indication: Cutaneous T-cell lymphoma
     Dosage: 12.5 MG/WEEK
     Route: 048
  4. METHOTREXATE [Suspect]
     Active Substance: METHOTREXATE
     Dosage: 12.5 MG/WEEK
     Route: 048
  5. PEGASYS [Suspect]
     Active Substance: PEGINTERFERON ALFA-2A
     Indication: Cutaneous T-cell lymphoma
     Dosage: 90 MG WEEKLY
     Route: 065
  6. PEGASYS [Suspect]
     Active Substance: PEGINTERFERON ALFA-2A
     Dosage: UNK
     Route: 065
  7. CLOBETASOL PROPIONATE [Concomitant]
     Active Substance: CLOBETASOL PROPIONATE
     Indication: Product used for unknown indication
     Dosage: TOPICAL STEROID OINTMENT
     Route: 061
  8. FOLIC ACID [Concomitant]
     Active Substance: FOLIC ACID
     Indication: Product used for unknown indication
     Dosage: 90 MG, QW
     Route: 065

REACTIONS (23)
  - COVID-19 [Fatal]
  - General physical health deterioration [Fatal]
  - Dyspnoea [Fatal]
  - Disease progression [Fatal]
  - Cutaneous T-cell lymphoma stage II [Fatal]
  - Interstitial lung disease [Fatal]
  - Pneumomediastinum [Fatal]
  - Pneumothorax [Fatal]
  - Skin plaque [Fatal]
  - Skin lesion [Fatal]
  - Neoplasm [Fatal]
  - Skin ulcer [Fatal]
  - Rash erythematous [Fatal]
  - Lymphadenopathy [Fatal]
  - Lymphocyte count abnormal [Fatal]
  - Biopsy skin abnormal [Fatal]
  - Lymphadenopathy [Fatal]
  - Lung opacity [Fatal]
  - Oxygen therapy [Fatal]
  - Lung opacity [Unknown]
  - Flow cytometry [Unknown]
  - Therapy change [Recovered/Resolved]
  - Off label use [Recovered/Resolved]
